FAERS Safety Report 8493270-4 (Version None)
Quarter: 2012Q2

REPORT INFORMATION
  Report Type: 
  Country: None (occurrence: None)
  Receive Date: 20120627
  Receipt Date: 20120614
  Transmission Date: 20120825
  Serious: Yes (Other)
  Sender: FDA-Public Use
  Company Number: DSA_58061_2012

PATIENT
  Age: 6 Year
  Sex: Female

DRUGS (2)
  1. ELIDEL [Suspect]
     Indication: DERMATITIS ATOPIC
     Dosage: (15 G BID TOPICAL)
     Route: 061
     Dates: start: 20100101
  2. DESONIDE [Suspect]
     Indication: DERMATITIS ATOPIC
     Dosage: (1 DF BID)

REACTIONS (3)
  - DERMATITIS ATOPIC [None]
  - INFLUENZA [None]
  - BLEPHARITIS [None]
